FAERS Safety Report 15895547 (Version 1)
Quarter: 2019Q1

REPORT INFORMATION
  Report Type: Spontaneous
  Country: JP (occurrence: JP)
  Receive Date: 20190131
  Receipt Date: 20190131
  Transmission Date: 20190417
  Serious: Yes (Other)
  Sender: FDA-Public Use
  Company Number: JP-PFIZER INC-2019037561

PATIENT
  Age: 66 Year
  Sex: Male

DRUGS (5)
  1. LEVOLEUCOVORIN CALCIUM. [Suspect]
     Active Substance: LEVOLEUCOVORIN CALCIUM
     Dosage: UNK UNK, 1X/DAY
     Route: 041
     Dates: start: 20181228, end: 20181228
  2. CAMPTO [Suspect]
     Active Substance: IRINOTECAN
     Dosage: UNK UNK, 1X/DAY
     Route: 041
     Dates: start: 20181228, end: 20181228
  3. CAMPTO [Suspect]
     Active Substance: IRINOTECAN
     Indication: COLON CANCER
     Dosage: UNK UNK, 1X/DAY
     Route: 041
     Dates: start: 20181212, end: 20181212
  4. FLUOROURACIL. [Suspect]
     Active Substance: FLUOROURACIL
     Indication: COLON CANCER
     Dosage: UNK
     Dates: start: 20181212
  5. LEVOLEUCOVORIN CALCIUM. [Suspect]
     Active Substance: LEVOLEUCOVORIN CALCIUM
     Indication: COLON CANCER
     Dosage: UNK UNK, 1X/DAY
     Route: 041
     Dates: start: 20181212, end: 20181212

REACTIONS (1)
  - Altered state of consciousness [Recovered/Resolved]

NARRATIVE: CASE EVENT DATE: 20181228
